FAERS Safety Report 10189563 (Version 2)
Quarter: 2014Q2

REPORT INFORMATION
  Report Type: Spontaneous
  Country: JP (occurrence: JP)
  Receive Date: 20140522
  Receipt Date: 20140522
  Transmission Date: 20141212
  Serious: Yes (Other)
  Sender: FDA-Public Use
  Company Number: JP-BAYER-2014-073053

PATIENT
  Age: 84 Year
  Sex: Male

DRUGS (1)
  1. ACETYLSALICYLIC ACID({=100 MG) [Suspect]
     Dosage: DAILY DOSE 100 MG
     Route: 048

REACTIONS (3)
  - Subdural haematoma [None]
  - Paralysis [None]
  - Renal impairment [None]
